FAERS Safety Report 22315213 (Version 1)
Quarter: 2023Q2

REPORT INFORMATION
  Report Type: Spontaneous
  Country: US (occurrence: None)
  Receive Date: 20230511
  Receipt Date: 20230511
  Transmission Date: 20230721
  Serious: No
  Sender: FDA-Public Use
  Company Number: None

PATIENT
  Age: 74 Year
  Sex: Female
  Weight: 62.1 kg

DRUGS (27)
  1. LEQVIO [Suspect]
     Active Substance: INCLISIRAN SODIUM
     Indication: Blood cholesterol increased
     Dosage: OTHER FREQUENCY : 2 TIMES A YEAR;?
     Route: 030
     Dates: start: 20230330
  2. SYNTHROID [Concomitant]
     Active Substance: LEVOTHYROXINE SODIUM
  3. OMEPRAZOLE [Concomitant]
     Active Substance: OMEPRAZOLE
  4. VICTOZA [Concomitant]
     Active Substance: LIRAGLUTIDE
  5. METFORMIN [Concomitant]
     Active Substance: METFORMIN HYDROCHLORIDE
  6. JARDIANCE [Concomitant]
     Active Substance: EMPAGLIFLOZIN
  7. ATACAND [Concomitant]
     Active Substance: CANDESARTAN CILEXETIL
  8. ZYRTEC [Concomitant]
     Active Substance: CETIRIZINE HYDROCHLORIDE
  9. SINGULAIR [Concomitant]
     Active Substance: MONTELUKAST SODIUM
  10. LIVALO [Concomitant]
     Active Substance: PITAVASTATIN CALCIUM
  11. ZETIA [Concomitant]
     Active Substance: EZETIMIBE
  12. IMDUR [Concomitant]
     Active Substance: ISOSORBIDE MONONITRATE
  13. NITROGLYCERIN [Concomitant]
     Active Substance: NITROGLYCERIN
  14. RESTASIS [Concomitant]
     Active Substance: CYCLOSPORINE
  15. FISH OIL [Concomitant]
     Active Substance: FISH OIL
  16. PROLIA [Concomitant]
     Active Substance: DENOSUMAB
  17. B-12 injections [Concomitant]
  18. LEQVIO [Concomitant]
     Active Substance: INCLISIRAN SODIUM
  19. PROBIOTIC COMPLEX [Concomitant]
  20. AREDS2 [Concomitant]
  21. VITAMIN E [Concomitant]
     Active Substance: .ALPHA.-TOCOPHEROL
  22. VITAMIN D3 [Concomitant]
     Active Substance: CHOLECALCIFEROL
  23. CALCIUM\VITAMIN D [Concomitant]
     Active Substance: CALCIUM\VITAMIN D
  24. CHONDROITIN SULFATE (BOVINE)\GLUCOSAMINE SULFATE [Concomitant]
     Active Substance: CHONDROITIN SULFATE (BOVINE)\GLUCOSAMINE SULFATE
  25. COENZYME Q10 [Concomitant]
     Active Substance: DIETARY SUPPLEMENT\UBIDECARENONE
  26. Cinnamon+Chromium [Concomitant]
  27. HERBALS\TURMERIC [Concomitant]
     Active Substance: HERBALS\TURMERIC

REACTIONS (1)
  - Fungal infection [None]

NARRATIVE: CASE EVENT DATE: 20230427
